FAERS Safety Report 6466462-3 (Version None)
Quarter: 2009Q4

REPORT INFORMATION
  Report Type: 
  Country: None (occurrence: None)
  Receive Date: 20091201
  Receipt Date: 20091201
  Transmission Date: 20100525
  Serious: Yes (Other)
  Sender: FDA-Public Use
  Company Number: None

PATIENT
  Age: 21 Year
  Sex: Male
  Weight: 74.8435 kg

DRUGS (1)
  1. DILANTIN [Suspect]
     Indication: EPILEPSY
     Dosage: 100MG 4X DAILY PO
     Route: 048
     Dates: start: 19880101, end: 19930201

REACTIONS (2)
  - BLOOD CALCIUM DECREASED [None]
  - HIP FRACTURE [None]
